FAERS Safety Report 6476020-2 (Version None)
Quarter: 2009Q4

REPORT INFORMATION
  Report Type: 
  Country: None (occurrence: None)
  Receive Date: 20091204
  Receipt Date: 20090109
  Transmission Date: 20100525
  Serious: No
  Sender: FDA-Public Use
  Company Number: US-AMGEN-KDL327882

PATIENT
  Sex: Female
  Weight: 123.5 kg

DRUGS (15)
  1. ENBREL [Suspect]
     Indication: RHEUMATOID ARTHRITIS
     Route: 058
     Dates: start: 20081007
  2. METHOTREXATE [Concomitant]
  3. ARAVA [Concomitant]
  4. PLAQUENIL [Concomitant]
  5. IRON [Concomitant]
  6. NEURONTIN [Concomitant]
  7. MAXZIDE [Concomitant]
  8. ATENOLOL [Concomitant]
  9. KCL-RETARD [Concomitant]
  10. EFFEXOR [Concomitant]
  11. L-LYSINE [Concomitant]
  12. ASCORBIC ACID [Concomitant]
  13. CALCIUM WITH VITAMIN D [Concomitant]
  14. TYLENOL W/ CODEINE NO. 3 [Concomitant]
  15. MULTI-VITAMINS [Concomitant]

REACTIONS (2)
  - INJECTION SITE ERYTHEMA [None]
  - NASOPHARYNGITIS [None]
